FAERS Safety Report 19897756 (Version 1)
Quarter: 2021Q3

REPORT INFORMATION
  Report Type: Spontaneous
  Country: US (occurrence: US)
  Receive Date: 20210929
  Receipt Date: 20210929
  Transmission Date: 20211014
  Serious: No
  Sender: FDA-Public Use
  Company Number: US-OTSUKA-2021_001366

PATIENT
  Age: 49 Year
  Sex: Female
  Weight: 99.79 kg

DRUGS (12)
  1. PRISTIQ EXTENDED?RELEASE [Concomitant]
     Active Substance: DESVENLAFAXINE SUCCINATE
     Indication: DEPRESSION
     Dosage: UNK UNK, QD (FREQUENCY 1, INTERVAL 1 DAYS)
     Route: 048
     Dates: start: 201909
  2. REXULTI [Suspect]
     Active Substance: BREXPIPRAZOLE
     Indication: DEPRESSION
     Dosage: UNK UNK, QD
     Route: 048
     Dates: start: 202008
  3. SYNTHROID [Concomitant]
     Active Substance: LEVOTHYROXINE SODIUM
     Indication: HYPOTHYROIDISM
     Dosage: UNK, QD (FREQUENCY 1, INTERVAL 1 DAYS)
     Route: 065
     Dates: start: 2016
  4. CLONAZEPAM. [Concomitant]
     Active Substance: CLONAZEPAM
     Indication: ANXIETY
     Dosage: FREQUENCY 2, INTERVAL 1 DAYS
     Route: 065
     Dates: start: 2013
  5. VITAMIN D [Concomitant]
     Active Substance: VITAMIN D NOS
     Indication: PRODUCT USED FOR UNKNOWN INDICATION
     Dosage: UNK (FREQUENCY 1, INTERVAL 1 DAYS)
     Route: 065
     Dates: start: 2010
  6. VALTREX [Concomitant]
     Active Substance: VALACYCLOVIR HYDROCHLORIDE
     Indication: ORAL HERPES
     Dosage: FREQUENCY 1, INTERVAL 1 DAYS
     Route: 048
  7. ADDERALL [Concomitant]
     Active Substance: AMPHETAMINE ASPARTATE\AMPHETAMINE SULFATE\DEXTROAMPHETAMINE SACCHARATE\DEXTROAMPHETAMINE SULFATE
     Indication: FATIGUE
     Dosage: TAKES IT IN THE MORNING AND EARLY AFTERNOON
     Route: 048
     Dates: start: 2004
  8. OCREVUS [Suspect]
     Active Substance: OCRELIZUMAB
     Indication: RELAPSING-REMITTING MULTIPLE SCLEROSIS
     Dosage: FREQUENCY 1, INTERVAL 6 MONTHS
     Route: 042
     Dates: start: 20200513
  9. GABAPENTIN. [Concomitant]
     Active Substance: GABAPENTIN
     Indication: MUSCLE SPASMS
     Dosage: 900 MG, TID (FREQUENCY 3, INTERVAL 1 DAYS)
     Route: 065
     Dates: end: 201808
  10. GABAPENTIN. [Concomitant]
     Active Substance: GABAPENTIN
     Dosage: 200 MG, TID (FREQUENCY 3, INTERVAL 1 DAYS, ONGOING)
     Route: 065
     Dates: start: 201808
  11. GABAPENTIN. [Concomitant]
     Active Substance: GABAPENTIN
     Dosage: UNK
     Route: 048
     Dates: start: 2003
  12. MAGNESIUM [Concomitant]
     Active Substance: MAGNESIUM
     Indication: DEPRESSION
     Dosage: FREQUENCY 1, INTERVAL 1 DAYS
     Route: 065
     Dates: start: 202012

REACTIONS (2)
  - COVID-19 [Unknown]
  - Drug ineffective [Unknown]

NARRATIVE: CASE EVENT DATE: 20201209
